FAERS Safety Report 21267307 (Version 2)
Quarter: 2022Q3

REPORT INFORMATION
  Report Type: Spontaneous
  Country: AU (occurrence: AU)
  Receive Date: 20220829
  Receipt Date: 20220907
  Transmission Date: 20221026
  Serious: Yes (Hospitalization, Other)
  Sender: FDA-Public Use
  Company Number: AU-NOVARTISPH-NVSC2022AU192862

PATIENT
  Sex: Male

DRUGS (16)
  1. ALLOPURINOL [Suspect]
     Active Substance: ALLOPURINOL
     Indication: Product used for unknown indication
     Dosage: 100 MG, BID (2 TABLETS IN THE MORNING WITH FOOD )
     Route: 048
  2. ALLOPURINOL [Suspect]
     Active Substance: ALLOPURINOL
     Dosage: 300 MG, QD (1 TABLET AT NIGHT )
     Route: 048
  3. ATORVASTATIN [Suspect]
     Active Substance: ATORVASTATIN
     Indication: Product used for unknown indication
     Dosage: 1 DOSAGE FORM, QD (TABLET, IN THE MORNING)
     Route: 048
  4. OLANZAPINE [Suspect]
     Active Substance: OLANZAPINE
     Indication: Product used for unknown indication
     Dosage: 5 MG, QD (STRENGTH :10 MG, IN THE MORNING 8 AM)
     Route: 048
  5. OLANZAPINE [Suspect]
     Active Substance: OLANZAPINE
     Dosage: 5 MG, QD (STRENGTH :10 MG, IN THE AT 5 PM)
     Route: 048
  6. OLANZAPINE [Suspect]
     Active Substance: OLANZAPINE
     Dosage: 25 MG, QD (STRENGTH :10 MG IN NIGHT 8 PM)
     Route: 048
  7. OLANZAPINE [Suspect]
     Active Substance: OLANZAPINE
     Dosage: 5 MG, QD (STRENGTH : 5 MG, IN THE MORNING AT 8 AM )
     Route: 048
  8. OLANZAPINE [Suspect]
     Active Substance: OLANZAPINE
     Dosage: 5 MG, QD (STRENGTH : 5 MG, AT 5 PM)
     Route: 048
  9. OLANZAPINE [Suspect]
     Active Substance: OLANZAPINE
     Dosage: 25 MG, QD (STRENGTH :5 MG IN NIGHT 8 PM)
     Route: 048
  10. ROSUVASTATIN [Suspect]
     Active Substance: ROSUVASTATIN
     Indication: Product used for unknown indication
     Route: 048
  11. RABEPRAZOLE [Suspect]
     Active Substance: RABEPRAZOLE
     Indication: Product used for unknown indication
     Dosage: 1 DOSAGE FORM, QD ( BRAND NAME: PARIET, ENTERIC TABLET, IN THE MORNING)
     Route: 048
  12. VALPROATE [Suspect]
     Active Substance: VALPROIC ACID
     Indication: Product used for unknown indication
     Dosage: 1200 MG, BID
     Route: 048
  13. ASPIRIN [Suspect]
     Active Substance: ASPIRIN
     Indication: Product used for unknown indication
     Dosage: 1 DOSAGE FORM (ENTERIC-COATED TABLET, IN THE MORNING WITH FOOD, PATIENT INSTRUCTIONS: SWALLOW WHOLE.
     Route: 048
  14. LEXAPRO [Suspect]
     Active Substance: ESCITALOPRAM OXALATE
     Indication: Product used for unknown indication
     Dosage: 1 DOSAGE FORM, QD (TABLET, IN THE MORNING)
     Route: 048
  15. THYROXINE [Suspect]
     Active Substance: LEVOTHYROXINE
     Indication: Product used for unknown indication
     Dosage: 0.1 MG (1 TABLET, FIVE TIMES A WEEK (MON TO FRI))
     Route: 048
  16. THYROXINE [Suspect]
     Active Substance: LEVOTHYROXINE
     Dosage: 0.075 MG, BIW (1 TABLET, ON SAT AND SUN)
     Route: 048

REACTIONS (9)
  - Chest pain [Recovered/Resolved]
  - Anxiety [Unknown]
  - Dyspnoea [Unknown]
  - Palpitations [Unknown]
  - Tachycardia [Unknown]
  - Troponin increased [Not Recovered/Not Resolved]
  - Leukocyte adhesion deficiency type I [Unknown]
  - Stenosis [Unknown]
  - Thrombocytopenia [Unknown]
